FAERS Safety Report 17414399 (Version 5)
Quarter: 2020Q3

REPORT INFORMATION
  Report Type: Spontaneous
  Country: US (occurrence: US)
  Receive Date: 20200213
  Receipt Date: 20200901
  Transmission Date: 20201102
  Serious: No
  Sender: FDA-Public Use
  Company Number: US-PFIZER INC-2020060798

PATIENT
  Age: 45 Year
  Sex: Male

DRUGS (3)
  1. XELJANZ XR [Suspect]
     Active Substance: TOFACITINIB CITRATE
     Indication: RHEUMATOID ARTHRITIS
     Dosage: 11 MG, 1X/DAY
     Route: 048
     Dates: start: 201911
  2. XELJANZ XR [Suspect]
     Active Substance: TOFACITINIB CITRATE
     Dosage: 11 MG, 1X/DAY
     Route: 048
     Dates: start: 202001, end: 2020
  3. LEFLUNOMIDE. [Suspect]
     Active Substance: LEFLUNOMIDE
     Dosage: UNK
     Dates: end: 2020

REACTIONS (7)
  - Drug ineffective [Unknown]
  - Tendon discomfort [Unknown]
  - Pain [Unknown]
  - Product dose omission issue [Unknown]
  - Paraesthesia [Recovering/Resolving]
  - Rash erythematous [Unknown]
  - Disease recurrence [Unknown]
